FAERS Safety Report 24333378 (Version 1)
Quarter: 2024Q3

REPORT INFORMATION
  Report Type: Report from Study
  Country: US (occurrence: US)
  Receive Date: 20240918
  Receipt Date: 20240918
  Transmission Date: 20241017
  Serious: Yes (Hospitalization)
  Sender: ABBVIE
  Company Number: US-ABBVIE-5923857

PATIENT
  Age: 82 Year
  Sex: Male

DRUGS (1)
  1. RINVOQ [Suspect]
     Active Substance: UPADACITINIB
     Indication: Colitis ulcerative
     Route: 048
     Dates: start: 20240905, end: 20240913

REACTIONS (6)
  - Hypertension [Not Recovered/Not Resolved]
  - Back pain [Not Recovered/Not Resolved]
  - Rash [Not Recovered/Not Resolved]
  - Fatigue [Unknown]
  - Dyspnoea [Unknown]
  - Vision blurred [Unknown]

NARRATIVE: CASE EVENT DATE: 20240901
